FAERS Safety Report 11907641 (Version 1)
Quarter: 2016Q1

REPORT INFORMATION
  Report Type: Report from Study
  Country: GB (occurrence: GB)
  Receive Date: 20160111
  Receipt Date: 20160111
  Transmission Date: 20160526
  Serious: Yes (Other)
  Sender: FDA-Public Use
  Company Number: GB-JNJFOC-20160105360

PATIENT
  Age: 71 Year
  Sex: Male
  Weight: 48 kg

DRUGS (1)
  1. USTEKINUMAB [Suspect]
     Active Substance: USTEKINUMAB
     Indication: PSORIASIS
     Route: 058
     Dates: start: 20120403

REACTIONS (1)
  - Glottis carcinoma [Not Recovered/Not Resolved]

NARRATIVE: CASE EVENT DATE: 20140428
